FAERS Safety Report 16723983 (Version 3)
Quarter: 2019Q3

REPORT INFORMATION
  Report Type: Report from Study
  Country: AU (occurrence: AU)
  Receive Date: 20190821
  Receipt Date: 20190918
  Transmission Date: 20191005
  Serious: Yes (Hospitalization)
  Sender: FDA-Public Use
  Company Number: PHHO2019AU008283

PATIENT
  Age: 13 Year
  Sex: Female
  Weight: 46.8 kg

DRUGS (20)
  1. PARACETAMOL [Concomitant]
     Active Substance: ACETAMINOPHEN
     Indication: INFECTION
  2. ONDANSETRON [Concomitant]
     Active Substance: ONDANSETRON
     Indication: INFECTION
  3. DIPROSONE [Concomitant]
     Active Substance: BETAMETHASONE DIPROPIONATE
     Indication: ECZEMA
     Dosage: 1 BID
     Route: 061
     Dates: start: 20160525
  4. ANTROQUORIL [Concomitant]
     Indication: ECZEMA
     Dosage: QD
     Route: 061
     Dates: start: 2017
  5. KEFLEX [Concomitant]
     Active Substance: CEPHALEXIN
     Indication: PARONYCHIA
     Dosage: 250 MG, BID
     Route: 061
     Dates: start: 20160621
  6. MELATONIN [Concomitant]
     Active Substance: MELATONIN
     Indication: SLEEP DISORDER
     Dosage: 2 MG, QPM
     Route: 048
     Dates: start: 2013
  7. SORBOLENE CREAM WITH 10% GLYCERINE [Concomitant]
     Indication: DRY MOUTH
     Dosage: 1 PRN
     Route: 061
     Dates: start: 20150902
  8. SIGMACORT [Concomitant]
     Indication: ANGULAR CHEILITIS
     Dosage: BID
     Route: 061
     Dates: start: 20170404
  9. PARACETAMOL [Concomitant]
     Active Substance: ACETAMINOPHEN
     Indication: ILL-DEFINED DISORDER
     Dosage: 500 MG, QD
     Route: 048
     Dates: start: 20150821
  10. ONDANSETRON [Concomitant]
     Active Substance: ONDANSETRON
     Indication: ILL-DEFINED DISORDER
     Dosage: 4 MG, Q8H
     Route: 048
     Dates: start: 20150824
  11. KEFLEX [Concomitant]
     Active Substance: CEPHALEXIN
     Dosage: 250 MG, UNK
     Route: 048
     Dates: start: 20170501
  12. TRIAMCINOLONE [Concomitant]
     Active Substance: TRIAMCINOLONE
     Indication: ECZEMA
     Dosage: 1 BID
     Route: 061
     Dates: start: 20151125
  13. TRAMETINIB [Suspect]
     Active Substance: TRAMETINIB
     Indication: NEUROFIBROMA
     Dosage: 1.125 MG, QD
     Route: 048
     Dates: start: 20150721, end: 20190814
  14. CETAPHIL [Concomitant]
     Active Substance: AVOBENZONE\OCTOCRYLENE\TRICLOSAN
     Indication: DRY EYE
  15. HYDROCORTISONE. [Concomitant]
     Active Substance: HYDROCORTISONE
     Indication: DERMATITIS ACNEIFORM
     Dosage: 1 TID
     Route: 061
     Dates: start: 20151015
  16. CHLORAMPHENICOL [Concomitant]
     Active Substance: CHLORAMPHENICOL
     Indication: CONJUNCTIVITIS
     Dosage: 1 BID
     Route: 061
     Dates: start: 20160104
  17. CELESTONE M [Concomitant]
     Indication: ECZEMA
     Dosage: 1 BID
     Route: 061
     Dates: start: 20160615
  18. GABAPENTIN. [Concomitant]
     Active Substance: GABAPENTIN
     Indication: PAIN
     Dosage: 00 MG, QD
     Route: 048
     Dates: start: 20161222
  19. SORBOLENE CREAM WITH 10% GLYCERINE [Concomitant]
     Indication: DRY EYE
  20. CETAPHIL [Concomitant]
     Active Substance: AVOBENZONE\OCTOCRYLENE\TRICLOSAN
     Indication: DRY MOUTH
     Dosage: 1 PRN
     Route: 061
     Dates: start: 20150902

REACTIONS (1)
  - Pancreatitis [Not Recovered/Not Resolved]

NARRATIVE: CASE EVENT DATE: 20190813
